FAERS Safety Report 8062556-X (Version None)
Quarter: 2012Q1

REPORT INFORMATION
  Report Type: 
  Country: None (occurrence: None)
  Receive Date: 20120118
  Receipt Date: 20120104
  Transmission Date: 20120608
  Serious: Yes (Other)
  Sender: FDA-Public Use
  Company Number: 1201-007

PATIENT
  Age: 87 Year
  Sex: Male

DRUGS (2)
  1. ZYMAXID [Concomitant]
  2. EYLEA (AFLIBERCEPT) (INJECTION) (AFLIBERCEPT) [Suspect]
     Indication: AGE-RELATED MACULAR DEGENERATION
     Dosage: 2 MG, ONCE, INTRAVITREAL
     Dates: start: 20111228, end: 20111228

REACTIONS (5)
  - VISUAL IMPAIRMENT [None]
  - CORNEAL ENDOTHELIITIS [None]
  - SENSATION OF FOREIGN BODY [None]
  - CORNEAL DECOMPENSATION [None]
  - EYE PAIN [None]
